FAERS Safety Report 7784248-4 (Version None)
Quarter: 2011Q3

REPORT INFORMATION
  Report Type: 
  Country: None (occurrence: None)
  Receive Date: 20110926
  Receipt Date: 20110919
  Transmission Date: 20111222
  Serious: Yes (Other)
  Sender: FDA-Public Use
  Company Number: NSR_00272_2011

PATIENT
  Age: 3 Month
  Sex: Male

DRUGS (1)
  1. PROPRANOLOL [Suspect]
     Indication: HAEMANGIOMA
     Dosage: (1.8 MG/KG QD), (DF)

REACTIONS (3)
  - BRONCHIAL HYPERREACTIVITY [None]
  - VIRAL INFECTION [None]
  - BLOOD PRESSURE DECREASED [None]
